FAERS Safety Report 13104052 (Version 3)
Quarter: 2017Q1

REPORT INFORMATION
  Report Type: Report from Study
  Country: US (occurrence: US)
  Receive Date: 20170111
  Receipt Date: 20170124
  Transmission Date: 20170428
  Serious: Yes (Death)
  Sender: FDA-Public Use
  Company Number: US-ROCHE-1877898

PATIENT
  Age: 97 Year
  Sex: Female

DRUGS (1)
  1. LUCENTIS [Suspect]
     Active Substance: RANIBIZUMAB
     Indication: NEOVASCULAR AGE-RELATED MACULAR DEGENERATION
     Dosage: RIGHT EYE?ONE VIAL: 0.05 ML OF A 10 MG/ML SOLUTION
     Route: 050
     Dates: start: 2011, end: 20160908

REACTIONS (1)
  - Death [Fatal]

NARRATIVE: CASE EVENT DATE: 20160926
